FAERS Safety Report 4783605-8 (Version None)
Quarter: 2005Q3

REPORT INFORMATION
  Report Type: 
  Country: None (occurrence: None)
  Receive Date: 20050929
  Receipt Date: 20050915
  Transmission Date: 20060218
  Serious: Yes (Hospitalization)
  Sender: FDA-Public Use
  Company Number: US-JNJFOC-20040305477

PATIENT
  Sex: Female

DRUGS (3)
  1. DURAGESIC-100 [Suspect]
     Dosage: LOT #0325053
     Route: 062
  2. DURAGESIC-100 [Suspect]
     Route: 062
  3. COUMADIN [Concomitant]
     Route: 048
     Dates: start: 20020623

REACTIONS (8)
  - COAGULOPATHY [None]
  - COMA [None]
  - ELECTROCARDIOGRAM ABNORMAL [None]
  - LOSS OF CONSCIOUSNESS [None]
  - OVERDOSE [None]
  - PHARMACEUTICAL PRODUCT COMPLAINT [None]
  - PULMONARY EMBOLISM [None]
  - PULSE ABSENT [None]
